FAERS Safety Report 8716494 (Version 2)
Quarter: 2013Q4

REPORT INFORMATION
  Report Type: Report from Study
  Country: US (occurrence: US)
  Receive Date: 20120810
  Receipt Date: 20131101
  Transmission Date: 20140711
  Serious: No
  Sender: FDA-Public Use
  Company Number: US-009507513-1208USA001072

PATIENT
  Age: 55 Year
  Sex: Male

DRUGS (5)
  1. PEGINTRON [Suspect]
     Dosage: 150 MICROGRAM/0.5 ML, QW
     Route: 058
  2. VICTRELIS [Suspect]
  3. RIBAPAK [Suspect]
     Dosage: 600 (UNITS UNKNOWN)
  4. MAPAP PM [Concomitant]
  5. VITAMINS (UNSPECIFIED) [Concomitant]

REACTIONS (1)
  - Fatigue [Unknown]
